FAERS Safety Report 16301611 (Version 2)
Quarter: 2019Q2

REPORT INFORMATION
  Report Type: Spontaneous
  Country: GB (occurrence: GB)
  Receive Date: 20190511
  Receipt Date: 20190514
  Transmission Date: 20190711
  Serious: Yes (Hospitalization, Disabling, Other)
  Sender: FDA-Public Use
  Company Number: GB-TEVA-2019-GB-1047740

PATIENT
  Age: 37 Year
  Sex: Female
  Weight: 49.89 kg

DRUGS (3)
  1. IRON [Concomitant]
     Active Substance: IRON
  2. VITAMIN B12 [Concomitant]
     Active Substance: CYANOCOBALAMIN
  3. CIPROFLOXACIN. [Suspect]
     Active Substance: CIPROFLOXACIN
     Indication: URINARY TRACT INFECTION
     Route: 048
     Dates: start: 201809, end: 201809

REACTIONS (7)
  - Gastric disorder [Unknown]
  - Gastrointestinal bacterial overgrowth [Unknown]
  - Muscle spasms [Unknown]
  - Malnutrition [Unknown]
  - Nerve injury [Not Recovered/Not Resolved]
  - Infection [Unknown]
  - Abnormal loss of weight [Unknown]
